FAERS Safety Report 9397944 (Version 1)
Quarter: 2013Q3

REPORT INFORMATION
  Report Type: Spontaneous
  Country: US (occurrence: US)
  Receive Date: 20130712
  Receipt Date: 20130712
  Transmission Date: 20140515
  Serious: Yes (Other)
  Sender: FDA-Public Use
  Company Number: US-GLAXOSMITHKLINE-A0863543A

PATIENT
  Age: 39 Year
  Sex: Female

DRUGS (1)
  1. AVANDIA [Suspect]
     Indication: DIABETES MELLITUS
     Dosage: 4MG TWICE PER DAY
     Route: 048
     Dates: start: 200102, end: 20071127

REACTIONS (7)
  - Chest pain [Not Recovered/Not Resolved]
  - Liver disorder [Unknown]
  - Headache [Unknown]
  - Nausea [Unknown]
  - Joint swelling [Unknown]
  - Abdominal pain [Unknown]
  - Myocardial infarction [Unknown]
